FAERS Safety Report 5806654-7 (Version None)
Quarter: 2008Q3

REPORT INFORMATION
  Report Type: 
  Country: None (occurrence: None)
  Receive Date: 20080710
  Receipt Date: 20080703
  Transmission Date: 20090109
  Serious: Yes (Death)
  Sender: FDA-Public Use
  Company Number: US-GILEAD-2008-0017142

PATIENT
  Sex: Female

DRUGS (17)
  1. LETAIRIS [Suspect]
     Route: 048
     Dates: start: 20080220, end: 20080630
  2. COUMADIN [Concomitant]
  3. COREG [Concomitant]
  4. TRIAMTERENE AND HYDROCHLOROTHIAZIDE [Concomitant]
  5. POTASSIUM CHLORIDE [Concomitant]
  6. DIGOXIN [Concomitant]
  7. ZAROXOLYN [Concomitant]
  8. LASIX [Concomitant]
  9. DEMADEX [Concomitant]
  10. MICARDIS [Concomitant]
  11. XOPENEX [Concomitant]
  12. ASTELIN [Concomitant]
  13. FLONASE [Concomitant]
  14. ALLEGRA [Concomitant]
  15. ALLOPURINOL [Concomitant]
  16. CELEBREX [Concomitant]
  17. NEXIUM [Concomitant]

REACTIONS (2)
  - DEATH [None]
  - UNEVALUABLE EVENT [None]
